FAERS Safety Report 20488638 (Version 2)
Quarter: 2022Q1

REPORT INFORMATION
  Report Type: Spontaneous
  Country: CO (occurrence: CO)
  Receive Date: 20220218
  Receipt Date: 20220304
  Transmission Date: 20220424
  Serious: Yes (Other)
  Sender: FDA-Public Use
  Company Number: CO-AMGEN-COLSP2022025533

PATIENT
  Age: 65 Year
  Sex: Female
  Weight: 49 kg

DRUGS (1)
  1. MVASI [Suspect]
     Active Substance: BEVACIZUMAB-AWWB
     Indication: Ovarian cancer metastatic
     Dosage: 600 MILLIGRAM, Q3WK
     Route: 065
     Dates: start: 20210104, end: 20210804

REACTIONS (4)
  - Ovarian cancer metastatic [Recovering/Resolving]
  - Therapy partial responder [Unknown]
  - Off label use [Unknown]
  - Hepatic cyst [Unknown]

NARRATIVE: CASE EVENT DATE: 20210104
